FAERS Safety Report 24953660 (Version 1)
Quarter: 2025Q1

REPORT INFORMATION
  Report Type: Report from Study
  Country: CA (occurrence: CA)
  Receive Date: 20250211
  Receipt Date: 20250211
  Transmission Date: 20250408
  Serious: Yes (Hospitalization)
  Sender: JOHNSON AND JOHNSON
  Company Number: CA-JNJFOC-20250144964

PATIENT
  Age: 22 Year
  Sex: Male

DRUGS (2)
  1. REMICADE [Suspect]
     Active Substance: INFLIXIMAB
     Indication: Crohn^s disease
     Route: 041
     Dates: start: 20230427
  2. REMICADE [Suspect]
     Active Substance: INFLIXIMAB
     Dosage: UNIT DOSE REPORTED AS 400 (UNITS UNSPECIFIED)
     Route: 041
     Dates: start: 20130214

REACTIONS (4)
  - Pneumonia [Not Recovered/Not Resolved]
  - Influenza [Unknown]
  - Vomiting [Unknown]
  - Off label use [Unknown]

NARRATIVE: CASE EVENT DATE: 20250109
